FAERS Safety Report 11772882 (Version 1)
Quarter: 2015Q4

REPORT INFORMATION
  Report Type: Spontaneous
  Country: US (occurrence: US)
  Receive Date: 20151124
  Receipt Date: 20151124
  Transmission Date: 20160304
  Serious: Yes (Hospitalization)
  Sender: FDA-Public Use
  Company Number: US-MALLINCKRODT-T201502436

PATIENT
  Age: 68 Year
  Sex: Male

DRUGS (1)
  1. GABLOFEN [Suspect]
     Active Substance: BACLOFEN
     Indication: MUSCLE SPASTICITY
     Dosage: 95 MCG/DAY
     Route: 037

REACTIONS (2)
  - Muscle spasticity [Unknown]
  - Device occlusion [Recovered/Resolved]

NARRATIVE: CASE EVENT DATE: 20150429
